FAERS Safety Report 22388400 (Version 12)
Quarter: 2024Q2

REPORT INFORMATION
  Report Type: Report from Study
  Country: CA (occurrence: CA)
  Receive Date: 20230531
  Receipt Date: 20240621
  Transmission Date: 20240717
  Serious: Yes (Death, Hospitalization, Other)
  Sender: FDA-Public Use
  Company Number: CA-GLAXOSMITHKLINE-CA2023AMR063217

PATIENT

DRUGS (14)
  1. MEPOLIZUMAB [Suspect]
     Active Substance: MEPOLIZUMAB
     Indication: Asthma
     Dosage: 10 MG, Q4W
     Route: 058
     Dates: start: 20181108
  2. MEPOLIZUMAB [Suspect]
     Active Substance: MEPOLIZUMAB
     Dosage: 100 MG, Q4W
     Route: 058
     Dates: start: 20181108
  3. MEPOLIZUMAB [Suspect]
     Active Substance: MEPOLIZUMAB
     Dosage: 100 MG, Q4W
     Route: 058
     Dates: start: 20181108
  4. MEPOLIZUMAB [Suspect]
     Active Substance: MEPOLIZUMAB
     Indication: Asthma
     Dosage: 100 MG, Q4W
     Route: 058
     Dates: start: 20181108
  5. MEPOLIZUMAB [Suspect]
     Active Substance: MEPOLIZUMAB
     Indication: Asthma
     Dosage: 100 MG, Q4W
     Route: 058
     Dates: start: 20181108
  6. MEPOLIZUMAB [Suspect]
     Active Substance: MEPOLIZUMAB
     Indication: Asthma
     Dosage: 100 MG, Q4W
     Route: 058
     Dates: start: 20181108
  7. UNSPECIFIED INGREDIENT [Suspect]
     Active Substance: UNSPECIFIED INGREDIENT
     Indication: Prophylaxis
     Dates: start: 20240524
  8. CHOLESTYRAMINE [Suspect]
     Active Substance: CHOLESTYRAMINE
     Indication: Product used for unknown indication
     Dosage: 2 G, BID
     Route: 048
  9. COVID-19 VACCINE NOS [Suspect]
     Active Substance: COVID-19 VACCINE
     Indication: Prophylaxis
     Dosage: UNK
     Dates: start: 20240116
  10. PNEUMOVAX 23 [Suspect]
     Active Substance: PNEUMOCOCCAL VACCINE, POLYVALENT 23
     Indication: Prophylaxis
     Dosage: UNK
     Dates: start: 20240524
  11. OXYGEN [Concomitant]
     Active Substance: OXYGEN
     Indication: Product used for unknown indication
     Dosage: UNK
  12. CANDESARTAN [Concomitant]
     Active Substance: CANDESARTAN
     Indication: Product used for unknown indication
     Dosage: 8 MG, QD
  13. DILTIAZEM [Concomitant]
     Active Substance: DILTIAZEM
     Indication: Product used for unknown indication
     Dosage: 300 MG, QD
     Route: 048
     Dates: start: 20230802
  14. CHOLESTYRAMINE [Concomitant]
     Active Substance: CHOLESTYRAMINE
     Indication: Product used for unknown indication
     Dosage: UNK

REACTIONS (31)
  - Death [Fatal]
  - Hospitalisation [Recovered/Resolved]
  - Pulmonary oedema [Not Recovered/Not Resolved]
  - Pneumonia [Unknown]
  - Influenza [Unknown]
  - Oxygen saturation decreased [Unknown]
  - Hypertension [Unknown]
  - Nightmare [Unknown]
  - Enuresis [Unknown]
  - Feeling abnormal [Unknown]
  - Gait disturbance [Unknown]
  - Dyspnoea [Unknown]
  - Asthenia [Unknown]
  - Fatigue [Not Recovered/Not Resolved]
  - Back pain [Not Recovered/Not Resolved]
  - Oxygen consumption increased [Unknown]
  - Oedema peripheral [Recovered/Resolved]
  - Oxygen saturation abnormal [Unknown]
  - Anaemia [Unknown]
  - Swelling [Unknown]
  - Diarrhoea [Recovered/Resolved]
  - Herpes zoster [Unknown]
  - Helminthic infection [Unknown]
  - Hypotension [Recovered/Resolved]
  - Cough [Recovering/Resolving]
  - Productive cough [Unknown]
  - Injection site pain [Unknown]
  - Sciatic nerve injury [Unknown]
  - Nasopharyngitis [Unknown]
  - Renal cyst [Unknown]
  - Back pain [Not Recovered/Not Resolved]
